FAERS Safety Report 9902762 (Version 2)
Quarter: 2014Q3

REPORT INFORMATION
  Report Type: Report from Study
  Country: KR (occurrence: KR)
  Receive Date: 20140217
  Receipt Date: 20140921
  Transmission Date: 20150326
  Serious: No
  Sender: FDA-Public Use
  Company Number: PHHY2014KR018435

PATIENT
  Age: 54 Year
  Sex: Female

DRUGS (9)
  1. AMN107 [Suspect]
     Active Substance: NILOTINIB
     Indication: CHRONIC MYELOID LEUKAEMIA
     Dosage: 800 MG, PER DAY
     Dates: start: 20121116
  2. GLADEM [Concomitant]
     Active Substance: SERTRALINE HYDROCHLORIDE
     Indication: DIABETES MELLITUS
     Dosage: 4 MG, UNK
     Route: 048
     Dates: start: 20120112
  3. ANPLAG [Concomitant]
     Active Substance: SARPOGRELATE
     Indication: ARTERIOSCLEROSIS
     Dosage: 200 MG, UNK
     Route: 048
     Dates: start: 20111007
  4. SYNTHROID [Concomitant]
     Active Substance: LEVOTHYROXINE SODIUM
     Indication: HYPERTHYROIDISM
     Dosage: 72.5 UG, UNK
     Dates: start: 20120816
  5. ADCAL [Concomitant]
     Indication: MINERAL SUPPLEMENTATION
     Dosage: 2 DF, UNK
     Dates: start: 20110713
  6. ADCAL [Concomitant]
     Indication: VITAMIN D
  7. DIABEX S.R. [Concomitant]
     Active Substance: METFORMIN HYDROCHLORIDE
     Indication: DIABETES MELLITUS
     Dosage: 1000 MG, UNK
     Route: 048
     Dates: start: 20120816
  8. GALVUS [Concomitant]
     Active Substance: VILDAGLIPTIN
     Indication: DIABETES MELLITUS
     Dosage: 100 MG, UNK
     Route: 048
     Dates: start: 20120412
  9. ATROVAN [Concomitant]
     Indication: ARTERIOSCLEROSIS
     Dosage: 10 MG, UNK
     Route: 048
     Dates: start: 20081120

REACTIONS (1)
  - Upper respiratory tract infection [Recovered/Resolved]

NARRATIVE: CASE EVENT DATE: 20130122
